FAERS Safety Report 25017376 (Version 1)
Quarter: 2025Q1

REPORT INFORMATION
  Report Type: Spontaneous
  Country: DE (occurrence: DE)
  Receive Date: 20250227
  Receipt Date: 20250227
  Transmission Date: 20250409
  Serious: Yes (Other)
  Sender: SANOFI AVENTIS
  Company Number: DE-BIOVITRUM-2025-DE-002461

PATIENT
  Age: 18 Year
  Sex: Male
  Weight: 50 kg

DRUGS (1)
  1. EFANESOCTOCOG ALFA [Suspect]
     Active Substance: EFANESOCTOCOG ALFA
     Indication: Factor VIII deficiency
     Dosage: 3000.000[IU] INTERNATION UNIT(S) QW
     Dates: start: 202411

REACTIONS (4)
  - Seizure [Unknown]
  - Haemorrhoids [Unknown]
  - Contusion [Unknown]
  - Lip injury [Unknown]
